FAERS Safety Report 6696746-5 (Version None)
Quarter: 2010Q2

REPORT INFORMATION
  Report Type: 
  Country: None (occurrence: None)
  Receive Date: 20100421
  Receipt Date: 20100305
  Transmission Date: 20101027
  Serious: No
  Sender: FDA-Public Use
  Company Number: US-000062

PATIENT
  Sex: 0

DRUGS (1)
  1. KUVAN [Suspect]
     Dosage: 1100 MG BID INTRA-UTERINE
     Route: 015

REACTIONS (1)
  - DRUG EXPOSURE DURING PREGNANCY [None]
